FAERS Safety Report 4539841-9 (Version None)
Quarter: 2004Q4

REPORT INFORMATION
  Report Type: 
  Country: None (occurrence: None)
  Receive Date: 20041222
  Receipt Date: 20041202
  Transmission Date: 20050328
  Serious: Yes (Hospitalization)
  Sender: FDA-Public Use
  Company Number: USA041184330

PATIENT
  Age: 33 Year
  Sex: Female

DRUGS (1)
  1. GLUCAGON [Suspect]
     Indication: DIABETES MELLITUS INSULIN-DEPENDENT

REACTIONS (4)
  - BLOOD GLUCOSE INCREASED [None]
  - NEUTROPHIL COUNT INCREASED [None]
  - PHAEOCHROMOCYTOMA [None]
  - WHITE BLOOD CELL COUNT INCREASED [None]
